FAERS Safety Report 4586915-2 (Version None)
Quarter: 2005Q1

REPORT INFORMATION
  Report Type: 
  Country: None (occurrence: None)
  Receive Date: 20050215
  Receipt Date: 20050215
  Transmission Date: 20050727
  Serious: Yes (Life-Threatening, Hospitalization)
  Sender: FDA-Public Use
  Company Number: None

PATIENT
  Sex: Female
  Weight: 65.7716 kg

DRUGS (1)
  1. VISICOL [Suspect]
     Indication: COLONOSCOPY
     Dosage: 20 TABLETS  4 Q 15 MINUTES   ORAL
     Route: 048
     Dates: start: 20050116, end: 20050116

REACTIONS (10)
  - ANOXIA [None]
  - BRAIN OEDEMA [None]
  - ELECTROLYTE IMBALANCE [None]
  - GRAND MAL CONVULSION [None]
  - INCONTINENCE [None]
  - METABOLIC ACIDOSIS [None]
  - NAUSEA [None]
  - STATUS EPILEPTICUS [None]
  - UNRESPONSIVE TO VERBAL STIMULI [None]
  - VOMITING [None]
